FAERS Safety Report 16417324 (Version 2)
Quarter: 2019Q2

REPORT INFORMATION
  Report Type: Report from Study
  Country: BR (occurrence: BR)
  Receive Date: 20190611
  Receipt Date: 20190611
  Transmission Date: 20190711
  Serious: Yes (Death, Hospitalization, Other)
  Sender: FDA-Public Use
  Company Number: PHHY2019BR133131

PATIENT
  Sex: Male

DRUGS (2)
  1. GALVUS MET [Suspect]
     Active Substance: METFORMIN HYDROCHLORIDE\VILDAGLIPTIN
     Indication: PRODUCT USED FOR UNKNOWN INDICATION
     Dosage: UNK (METFORMIN 1000 MG, VILDAGLIPTIN 50 MG)
     Route: 065
  2. DIOVAN AMLO FIX [Suspect]
     Active Substance: AMLODIPINE\VALSARTAN
     Indication: PRODUCT USED FOR UNKNOWN INDICATION
     Dosage: UNK (AMLODIPINE 5 MG, VALSARTAN 320 MG)
     Route: 065

REACTIONS (4)
  - Respiratory failure [Fatal]
  - Metastases to bone [Fatal]
  - Lung neoplasm malignant [Fatal]
  - Diabetes mellitus [Unknown]
